FAERS Safety Report 6346908-1 (Version None)
Quarter: 2009Q3

REPORT INFORMATION
  Report Type: 
  Country: None (occurrence: None)
  Receive Date: 20090909
  Receipt Date: 20090909
  Transmission Date: 20100115
  Serious: Yes (Hospitalization)
  Sender: FDA-Public Use
  Company Number: None

PATIENT
  Age: 56 Year
  Sex: Male
  Weight: 108.8633 kg

DRUGS (1)
  1. THORAZINE [Suspect]
     Indication: HICCUPS
     Dosage: UNKNOWN BY PATIENT QID IM
     Route: 030
     Dates: start: 20090505, end: 20090508

REACTIONS (7)
  - DEREALISATION [None]
  - INSOMNIA [None]
  - LETHARGY [None]
  - NIGHT SWEATS [None]
  - PSYCHOTIC DISORDER [None]
  - SPEECH DISORDER [None]
  - TACHYPHRENIA [None]
